FAERS Safety Report 16028371 (Version 3)
Quarter: 2020Q2

REPORT INFORMATION
  Report Type: Spontaneous
  Country: CN (occurrence: CN)
  Receive Date: 20190304
  Receipt Date: 20200508
  Transmission Date: 20200713
  Serious: Yes (Other)
  Sender: FDA-Public Use
  Company Number: CN-ROCHE-2272574

PATIENT
  Sex: Female

DRUGS (17)
  1. IRINOTECAN [Concomitant]
     Active Substance: IRINOTECAN
     Indication: ADENOCARCINOMA OF COLON
     Dosage: 240MG DAY1
     Route: 041
     Dates: start: 20171223
  2. OXALIPLATIN. [Concomitant]
     Active Substance: OXALIPLATIN
     Indication: COLON CANCER
     Dosage: FOLOFX REGIMEN
     Route: 065
     Dates: start: 20140420
  3. XELODA [Suspect]
     Active Substance: CAPECITABINE
     Indication: COLON CANCER
     Route: 048
     Dates: start: 20141117
  4. RALTITREXED [Concomitant]
     Active Substance: RALTITREXED
     Indication: ADENOCARCINOMA OF COLON
     Dosage: 4MG DAY2
     Route: 041
     Dates: start: 20171223
  5. CALCIUM FOLINATE [Concomitant]
     Active Substance: LEUCOVORIN CALCIUM
     Indication: COLON CANCER
     Dosage: FOLOFX REGIMEN
     Route: 065
     Dates: start: 20140420
  6. OXALIPLATIN. [Concomitant]
     Active Substance: OXALIPLATIN
     Indication: ADENOCARCINOMA OF COLON
     Dosage: FOLOFX REGIMEN
     Route: 065
     Dates: start: 20140420
  7. OXALIPLATIN. [Concomitant]
     Active Substance: OXALIPLATIN
     Dosage: FOLOFX REGIMEN
     Route: 065
     Dates: start: 20140420
  8. CALCIUM FOLINATE [Concomitant]
     Active Substance: LEUCOVORIN CALCIUM
     Indication: ADENOCARCINOMA OF COLON
     Dosage: FOLOFX REGIMEN
     Route: 065
     Dates: start: 20140420
  9. FLUOROURACIL. [Concomitant]
     Active Substance: FLUOROURACIL
     Dosage: FOLOFX REGIMEN
     Route: 065
     Dates: start: 20140420
  10. AVASTIN [Suspect]
     Active Substance: BEVACIZUMAB
     Indication: ADENOCARCINOMA OF COLON
     Route: 041
     Dates: start: 20140320
  11. AVASTIN [Suspect]
     Active Substance: BEVACIZUMAB
     Indication: COLON CANCER
     Dosage: 250MG DAY1
     Route: 041
     Dates: start: 20171223
  12. FLUOROURACIL. [Concomitant]
     Active Substance: FLUOROURACIL
     Indication: ADENOCARCINOMA OF COLON
     Dosage: FOLOFX REGIMEN
     Route: 065
     Dates: start: 20140420
  13. FLUOROURACIL. [Concomitant]
     Active Substance: FLUOROURACIL
     Indication: COLON CANCER
     Dosage: FOLOFX REGIMEN
     Route: 065
     Dates: start: 20140420
  14. CALCIUM FOLINATE [Concomitant]
     Active Substance: LEUCOVORIN CALCIUM
     Dosage: FOLOFX REGIMEN
     Route: 065
     Dates: start: 20140420
  15. XELODA [Suspect]
     Active Substance: CAPECITABINE
     Indication: ADENOCARCINOMA OF COLON
     Route: 048
     Dates: start: 20141114
  16. IRINOTECAN [Concomitant]
     Active Substance: IRINOTECAN
     Indication: COLON CANCER
  17. RALTITREXED [Concomitant]
     Active Substance: RALTITREXED
     Indication: COLON CANCER

REACTIONS (6)
  - Asthenia [Unknown]
  - Hepatic function abnormal [Unknown]
  - Anaemia [Unknown]
  - Cholinergic syndrome [Unknown]
  - Proteinuria [Unknown]
  - Nausea [Unknown]
